FAERS Safety Report 22042062 (Version 2)
Quarter: 2023Q1

REPORT INFORMATION
  Report Type: Spontaneous
  Country: US (occurrence: US)
  Receive Date: 20230227
  Receipt Date: 20230324
  Transmission Date: 20230417
  Serious: Yes (Other)
  Sender: FDA-Public Use
  Company Number: US-BEH-2023155642

PATIENT
  Age: 50 Year
  Sex: Female

DRUGS (2)
  1. HUMATE-P [Suspect]
     Active Substance: HUMAN COAGULATION FACTOR VIII/VON WILLEBRAND FACTOR COMPLEX
     Indication: Von Willebrand^s disease
     Dosage: 3900 INTERNATIONAL UNIT, TIW
     Route: 042
     Dates: start: 202205
  2. HUMATE-P [Suspect]
     Active Substance: HUMAN COAGULATION FACTOR VIII/VON WILLEBRAND FACTOR COMPLEX
     Dosage: UNK
     Route: 042
     Dates: start: 20230305

REACTIONS (9)
  - Traumatic haemorrhage [Recovered/Resolved]
  - Traumatic haemorrhage [Recovered/Resolved]
  - Fall [Unknown]
  - Catheter site haemorrhage [Recovered/Resolved]
  - Product use complaint [Recovered/Resolved]
  - Catheter site swelling [Unknown]
  - Haemorrhage [Recovered/Resolved]
  - No adverse event [Unknown]
  - Product use complaint [Unknown]

NARRATIVE: CASE EVENT DATE: 20230211
